FAERS Safety Report 20044096 (Version 2)
Quarter: 2022Q3

REPORT INFORMATION
  Report Type: Report from Study
  Country: CA (occurrence: CA)
  Receive Date: 20211108
  Receipt Date: 20220712
  Transmission Date: 20221027
  Serious: Yes (Hospitalization)
  Sender: FDA-Public Use
  Company Number: CA-BEH-2021137698

PATIENT
  Age: 16 Year
  Sex: Female
  Weight: 28 kg

DRUGS (15)
  1. HIZENTRA [Suspect]
     Active Substance: HUMAN IMMUNOGLOBULIN G
     Indication: Secondary immunodeficiency
     Dosage: 10 GRAM, BI-MONTHLY
     Route: 065
     Dates: start: 20161104
  2. HIZENTRA [Suspect]
     Active Substance: HUMAN IMMUNOGLOBULIN G
     Dosage: 8 GRAM, QW
     Route: 065
     Dates: start: 20161104
  3. HIZENTRA [Suspect]
     Active Substance: HUMAN IMMUNOGLOBULIN G
     Dosage: UNK
     Route: 065
  4. TACROLIMUS [Concomitant]
     Active Substance: TACROLIMUS
  5. CELLCEPT [Concomitant]
     Active Substance: MYCOPHENOLATE MOFETIL
  6. PREDNISONE [Concomitant]
     Active Substance: PREDNISONE
  7. MEPRON [Concomitant]
     Active Substance: ATOVAQUONE
  8. AMLODIPINE [Concomitant]
     Active Substance: AMLODIPINE BESYLATE
  9. CLONIDINE [Concomitant]
     Active Substance: CLONIDINE
  10. METOPROLOL [Concomitant]
     Active Substance: METOPROLOL
  11. IRON [Concomitant]
     Active Substance: IRON
  12. MG [MAGNESIUM SULFATE] [Concomitant]
  13. LANSOPRAZOLE [Concomitant]
     Active Substance: LANSOPRAZOLE
  14. NITROFURANTOIN [Concomitant]
     Active Substance: NITROFURANTOIN
  15. ROCALTROL [Concomitant]
     Active Substance: CALCITRIOL

REACTIONS (1)
  - Renal transplant [Recovering/Resolving]

NARRATIVE: CASE EVENT DATE: 20211020
